FAERS Safety Report 26196672 (Version 1)
Quarter: 2025Q4

REPORT INFORMATION
  Report Type: Spontaneous
  Country: EU (occurrence: EU)
  Receive Date: 20251224
  Receipt Date: 20251224
  Transmission Date: 20260117
  Serious: Yes (Death, Other)
  Sender: GALDERMA
  Company Number: EU-GALDERMA-DE2025026992

PATIENT

DRUGS (1)
  1. DOXYCYCLINE [Suspect]
     Active Substance: DOXYCYCLINE
     Indication: Dermatitis acneiform
     Dosage: UNK
     Route: 048
     Dates: start: 202510, end: 2025

REACTIONS (3)
  - Completed suicide [Fatal]
  - Anxiety [Unknown]
  - Intentional product use issue [Recovered/Resolved]

NARRATIVE: CASE EVENT DATE: 20250101
